FAERS Safety Report 20532193 (Version 9)
Quarter: 2024Q2

REPORT INFORMATION
  Report Type: Spontaneous
  Country: US (occurrence: US)
  Receive Date: 20220301
  Receipt Date: 20240422
  Transmission Date: 20240716
  Serious: No
  Sender: FDA-Public Use
  Company Number: US-PFIZER INC-202101333286

PATIENT
  Age: 69 Year
  Sex: Female

DRUGS (2)
  1. IBRANCE [Suspect]
     Active Substance: PALBOCICLIB
     Indication: Breast cancer metastatic
     Dosage: 100 MG
  2. IBRANCE [Suspect]
     Active Substance: PALBOCICLIB
     Dosage: 75 MG, CYCLIC (TAKE 1 TABLET (75 MG TOTAL) FOR 21 DAYS ON, 7 DAYS OFF/3 WEEKS ON, 1 WEEK OFF)
     Route: 048
     Dates: start: 20220308

REACTIONS (5)
  - Pain [Unknown]
  - Malaise [Unknown]
  - Arthritis [Not Recovered/Not Resolved]
  - Osteopenia [Not Recovered/Not Resolved]
  - Bone pain [Not Recovered/Not Resolved]
